FAERS Safety Report 22624901 (Version 7)
Quarter: 2023Q4

REPORT INFORMATION
  Report Type: Spontaneous
  Country: IN (occurrence: IN)
  Receive Date: 20230621
  Receipt Date: 20231103
  Transmission Date: 20240109
  Serious: Yes (Hospitalization, Other)
  Sender: FDA-Public Use
  Company Number: IN-PFIZER INC-PV202300105367

PATIENT
  Age: 72 Year
  Sex: Female

DRUGS (10)
  1. CRIZOTINIB [Suspect]
     Active Substance: CRIZOTINIB
     Indication: Lung cancer metastatic
     Dosage: 250 MG, 2X/DAY
     Route: 048
     Dates: start: 202211
  2. CRIZOTINIB [Suspect]
     Active Substance: CRIZOTINIB
     Dosage: 250 MG, 2X/DAY
     Route: 048
     Dates: start: 20221108, end: 20230224
  3. CRIZOTINIB [Suspect]
     Active Substance: CRIZOTINIB
     Dosage: 250 MG, 2X/DAY
     Route: 048
     Dates: start: 20230515
  4. MEGESTROL ACETATE [Concomitant]
     Active Substance: MEGESTROL ACETATE
     Dosage: 40 MG
     Dates: start: 202204
  5. RANITIDINE HYDROCHLORIDE [Concomitant]
     Active Substance: RANITIDINE HYDROCHLORIDE
     Dosage: 150 MG
     Dates: start: 202204
  6. ENVAS [Concomitant]
     Indication: Hypertension
     Dosage: 5 MG
  7. GLYCOMET [METFORMIN HYDROCHLORIDE] [Concomitant]
     Indication: Diabetes mellitus
     Dosage: 500 MG
  8. GLIMY [Concomitant]
     Indication: Diabetes mellitus
     Dosage: 2 MG
  9. VITAMIN C [Concomitant]
     Active Substance: ASCORBIC ACID
     Dosage: UNK
     Dates: start: 202204
  10. VOLIX [Concomitant]
     Indication: Diabetes mellitus
     Dosage: UNK

REACTIONS (21)
  - Kidney infection [Not Recovered/Not Resolved]
  - Urinary tract infection [Recovering/Resolving]
  - Acute kidney injury [Recovered/Resolved]
  - Bacterial infection [Unknown]
  - Vomiting [Recovered/Resolved]
  - Dehydration [Recovered/Resolved]
  - Pyrexia [Recovered/Resolved]
  - Back pain [Recovered/Resolved]
  - Peripheral swelling [Recovered/Resolved]
  - Chills [Recovered/Resolved]
  - Respiratory rate increased [Unknown]
  - Blood pressure systolic increased [Unknown]
  - Cough [Unknown]
  - Heart rate increased [Unknown]
  - Blood creatinine increased [Recovering/Resolving]
  - Asthenia [Unknown]
  - Appetite disorder [Recovering/Resolving]
  - Blood sodium increased [Recovered/Resolved]
  - Blood creatine decreased [Unknown]
  - Blood urea increased [Unknown]
  - Diabetic nephropathy [Unknown]

NARRATIVE: CASE EVENT DATE: 20230201
